FAERS Safety Report 21576631 (Version 2)
Quarter: 2022Q4

REPORT INFORMATION
  Report Type: Report from Study
  Country: DE (occurrence: DE)
  Receive Date: 20221110
  Receipt Date: 20221116
  Transmission Date: 20230113
  Serious: Yes (Hospitalization)
  Sender: FDA-Public Use
  Company Number: DE-TAKEDA-2022TUS082005

PATIENT
  Age: 22 Year
  Sex: Male

DRUGS (2)
  1. VELAGLUCERASE ALFA [Suspect]
     Active Substance: VELAGLUCERASE ALFA
     Indication: Gaucher^s disease
     Dosage: 2800 INTERNATIONAL UNIT, Q2WEEKS
     Route: 042
  2. VELAGLUCERASE ALFA [Suspect]
     Active Substance: VELAGLUCERASE ALFA
     Dosage: 2800 INTERNATIONAL UNIT, 2/WEEK
     Route: 042

REACTIONS (5)
  - Road traffic accident [Unknown]
  - Contusion [Unknown]
  - Intervertebral disc annular tear [Unknown]
  - Injury [Unknown]
  - COVID-19 [Recovered/Resolved]

NARRATIVE: CASE EVENT DATE: 20221029
